FAERS Safety Report 16946205 (Version 1)
Quarter: 2019Q4

REPORT INFORMATION
  Report Type: Spontaneous
  Country: US (occurrence: US)
  Receive Date: 20191022
  Receipt Date: 20191022
  Transmission Date: 20200122
  Serious: No
  Sender: FDA-Public Use
  Company Number: US-SA-2019SA291248

PATIENT
  Sex: Female

DRUGS (6)
  1. AUBAGIO [Suspect]
     Active Substance: TERIFLUNOMIDE
     Indication: MULTIPLE SCLEROSIS
     Dosage: 14 MG, QD
     Route: 048
     Dates: start: 201909
  2. AMPYRA [Concomitant]
     Active Substance: DALFAMPRIDINE
  3. TYLENOL [Concomitant]
     Active Substance: ACETAMINOPHEN
  4. COREG [Concomitant]
     Active Substance: CARVEDILOL
  5. AMLODIPINE;ATORVASTATIN [Concomitant]
  6. BACLOFEN. [Concomitant]
     Active Substance: BACLOFEN

REACTIONS (1)
  - Nausea [Unknown]
